FAERS Safety Report 10347908 (Version 1)
Quarter: 2014Q3

REPORT INFORMATION
  Report Type: Spontaneous
  Country: JP (occurrence: JP)
  Receive Date: 20140729
  Receipt Date: 20140729
  Transmission Date: 20150326
  Serious: Yes (Hospitalization)
  Sender: FDA-Public Use
  Company Number: PHHY2011JP121278

PATIENT
  Age: 79 Year
  Sex: Female

DRUGS (3)
  1. EXJADE [Suspect]
     Active Substance: DEFERASIROX
     Indication: MYELODYSPLASTIC SYNDROME
     Dosage: 125 MG, DAILY
     Dates: start: 201103
  2. EXJADE [Suspect]
     Active Substance: DEFERASIROX
     Dosage: 500 MG, Q96H
  3. EXJADE [Suspect]
     Active Substance: DEFERASIROX
     Dosage: 500 MG, PER DAY

REACTIONS (1)
  - Infection [Unknown]
